FAERS Safety Report 5187899-9 (Version None)
Quarter: 2006Q4

REPORT INFORMATION
  Report Type: 
  Country: None (occurrence: None)
  Receive Date: 20061221
  Receipt Date: 20061213
  Transmission Date: 20070319
  Serious: Yes (Other)
  Sender: FDA-Public Use
  Company Number: PHBS2006JP19413

PATIENT
  Age: 72 Year
  Sex: Male

DRUGS (4)
  1. PLETAL [Concomitant]
     Indication: DIABETES MELLITUS
     Route: 048
  2. ASPIRIN [Concomitant]
     Indication: ANGINA PECTORIS
     Route: 048
     Dates: end: 20060522
  3. PREDNISOLONE [Concomitant]
     Indication: INTERSTITIAL LUNG DISEASE
     Dosage: 60 TO 25 MG/DAY
     Route: 048
     Dates: start: 20060419
  4. DICLOFENAC SODIUM [Suspect]
     Indication: RHEUMATOID ARTHRITIS
     Route: 048
     Dates: start: 20060419, end: 20060522

REACTIONS (4)
  - CYTOMEGALOVIRUS INFECTION [None]
  - GASTRIC MUCOSAL LESION [None]
  - SHOCK HAEMORRHAGIC [None]
  - UPPER GASTROINTESTINAL HAEMORRHAGE [None]
